FAERS Safety Report 9771343 (Version 2)
Quarter: 2013Q4

REPORT INFORMATION
  Report Type: Spontaneous
  Country: PT (occurrence: PT)
  Receive Date: 20131218
  Receipt Date: 20131218
  Transmission Date: 20140711
  Serious: Yes (Other)
  Sender: FDA-Public Use
  Company Number: PHHY2013PT133574

PATIENT
  Age: 57 Year
  Sex: Female
  Weight: 89 kg

DRUGS (10)
  1. VOLTAREN [Suspect]
     Indication: PAIN
     Dosage: 75 MG, QD
     Route: 030
     Dates: start: 20130916, end: 20130919
  2. RELMUS [Suspect]
     Indication: PAIN
     Dosage: 4 MG, QD
     Route: 030
     Dates: start: 20130916, end: 20130920
  3. STAGID [Concomitant]
     Dosage: 700 MG, BID
     Route: 048
  4. JANUVIA [Concomitant]
     Dosage: 100 MG, QD
     Route: 048
  5. LOSARTAN + HIDROCLOROTIAZIDA [Concomitant]
     Dosage: 1 DF, QD
     Route: 048
  6. OLSAR [Concomitant]
     Indication: PAIN
     Dosage: 20 MG, QD
     Route: 048
  7. SINVASTATINA [Concomitant]
     Dosage: 40 MG, QD
     Route: 048
  8. STUGERON [Concomitant]
     Dosage: 75 MG, QD
     Route: 048
  9. DAFLON 500 [Concomitant]
     Dosage: 500 MG, TID
     Route: 048
  10. VASTAREL [Concomitant]
     Dosage: 20 MG, TID
     Route: 048

REACTIONS (3)
  - Malaise [Recovered/Resolved]
  - Generalised oedema [Recovered/Resolved]
  - Hypertensive crisis [Recovered/Resolved]
